FAERS Safety Report 4321083-3 (Version None)
Quarter: 2004Q1

REPORT INFORMATION
  Report Type: 
  Country: None (occurrence: None)
  Receive Date: 20040322
  Receipt Date: 20040322
  Transmission Date: 20041129
  Serious: Yes (Hospitalization)
  Sender: FDA-Public Use
  Company Number: None

PATIENT
  Age: 76 Year
  Sex: Male
  Weight: 72 kg

DRUGS (10)
  1. CALCIUM 500MG/VITAMIN D 200IU [Suspect]
     Indication: HYPOCALCAEMIA
     Dosage: 1000MG/400IU TID
     Dates: start: 20031222, end: 20040224
  2. FUROSEMIDE [Concomitant]
  3. DIGOXIN [Concomitant]
  4. SOTALOL HCL [Concomitant]
  5. SALSALATE [Concomitant]
  6. ISOSORBIDE MONONITRATE [Concomitant]
  7. FELODIPINE [Concomitant]
  8. CLOPIDOGREL [Concomitant]
  9. ATORVASTATIN [Concomitant]
  10. ASPIRIN [Concomitant]

REACTIONS (6)
  - ASTHENIA [None]
  - BLOOD CALCIUM INCREASED [None]
  - FALL [None]
  - HEAD INJURY [None]
  - LACERATION [None]
  - LETHARGY [None]
